FAERS Safety Report 17268458 (Version 1)
Quarter: 2020Q1

REPORT INFORMATION
  Report Type: Report from Study
  Country: CA (occurrence: CA)
  Receive Date: 20200114
  Receipt Date: 20200114
  Transmission Date: 20200409
  Serious: Yes (Other)
  Sender: FDA-Public Use
  Company Number: CA-JNJFOC-20200112829

PATIENT
  Sex: Female
  Weight: 55.3 kg

DRUGS (1)
  1. STELARA [Suspect]
     Active Substance: USTEKINUMAB
     Indication: CROHN^S DISEASE
     Route: 058

REACTIONS (4)
  - Product use issue [Unknown]
  - Infection [Not Recovered/Not Resolved]
  - Eye infection [Recovering/Resolving]
  - Off label use [Unknown]
